FAERS Safety Report 23079456 (Version 2)
Quarter: 2023Q4

REPORT INFORMATION
  Report Type: Report from Study
  Country: IN (occurrence: IN)
  Receive Date: 20231018
  Receipt Date: 20231108
  Transmission Date: 20240109
  Serious: Yes (Other)
  Sender: FDA-Public Use
  Company Number: IN-002147023-NVSC2023IN219357

PATIENT

DRUGS (4)
  1. RUXOLITINIB [Suspect]
     Active Substance: RUXOLITINIB
     Indication: Thrombocytopenia
     Dosage: 10 MG, BID (CONCENTRATION 10 MG)
     Route: 048
     Dates: start: 20191211
  2. RUXOLITINIB [Suspect]
     Active Substance: RUXOLITINIB
     Dosage: 10 MG, BID (CONCENTRATION 10 MG)
     Route: 065
     Dates: start: 20221019
  3. RUXOLITINIB [Suspect]
     Active Substance: RUXOLITINIB
     Dosage: 10 MG, BID (CONCENTRATION 10 MG)
     Route: 065
  4. RUXOLITINIB [Suspect]
     Active Substance: RUXOLITINIB
     Dosage: 5 MG, BID (CONCENTRATION 10 MG)
     Route: 065

REACTIONS (11)
  - Ill-defined disorder [Unknown]
  - Platelet count abnormal [Unknown]
  - Haemoglobin decreased [Unknown]
  - Headache [Unknown]
  - Lymphocyte count increased [Unknown]
  - Haematocrit decreased [Unknown]
  - Pain [Unknown]
  - Product dose omission issue [Unknown]
  - Product use in unapproved indication [Unknown]
  - Red blood cell count decreased [Unknown]
  - White blood cell count decreased [Unknown]

NARRATIVE: CASE EVENT DATE: 20191211
